FAERS Safety Report 6447872-7 (Version None)
Quarter: 2009Q4

REPORT INFORMATION
  Report Type: 
  Country: None (occurrence: None)
  Receive Date: 20091120
  Receipt Date: 20091117
  Transmission Date: 20100525
  Serious: Yes (Death, Life-Threatening)
  Sender: FDA-Public Use
  Company Number: JP-JNJFOC-20090700464

PATIENT
  Sex: Female
  Weight: 57 kg

DRUGS (5)
  1. DOXORUBICIN HCL [Suspect]
     Dosage: TOTAL DOSE ADMINISTERED 80 MG.
     Route: 042
  2. DOXORUBICIN HCL [Suspect]
     Indication: OVARIAN CANCER RECURRENT
     Route: 042
  3. ELCATONIN [Concomitant]
     Route: 042
  4. ZOMETA [Concomitant]
     Route: 042
  5. HEPARIN [Concomitant]
     Route: 042

REACTIONS (4)
  - BONE MARROW FAILURE [None]
  - MALIGNANT NEOPLASM PROGRESSION [None]
  - NEOPLASM RECURRENCE [None]
  - OVARIAN CANCER [None]
